FAERS Safety Report 13175593 (Version 2)
Quarter: 2018Q1

REPORT INFORMATION
  Report Type: Report from Study
  Country: US (occurrence: US)
  Receive Date: 20170201
  Receipt Date: 20180128
  Transmission Date: 20180508
  Serious: No
  Sender: FDA-Public Use
  Company Number: PHEH2017US002495

PATIENT
  Sex: Female

DRUGS (1)
  1. COSENTYX [Suspect]
     Active Substance: SECUKINUMAB
     Indication: PRODUCT USED FOR UNKNOWN INDICATION
     Route: 058
     Dates: start: 20161101

REACTIONS (4)
  - Psoriasis [Recovering/Resolving]
  - Injection site pain [Unknown]
  - Pharyngitis streptococcal [Unknown]
  - Skin plaque [Recovering/Resolving]
